FAERS Safety Report 7884451-9 (Version None)
Quarter: 2011Q4

REPORT INFORMATION
  Report Type: 
  Country: None (occurrence: None)
  Receive Date: 20111102
  Receipt Date: 20111024
  Transmission Date: 20120403
  Serious: Yes (Hospitalization)
  Sender: FDA-Public Use
  Company Number: DE-ROCHE-1007033

PATIENT
  Sex: Male
  Weight: 89 kg

DRUGS (7)
  1. BISO COMP [Concomitant]
     Indication: ESSENTIAL HYPERTENSION
     Dosage: DOSE: 5-12.5 MG
     Route: 048
  2. PEGINTERFERON ALFA-2A [Suspect]
     Indication: HEPATITIS C
     Route: 058
     Dates: start: 20100506, end: 20110407
  3. DOXEPIN [Concomitant]
     Dosage: DOSE 25-50 MG
     Route: 048
  4. ARCOXIA [Concomitant]
     Indication: OSTEOARTHRITIS
     Route: 048
  5. COPEGUS [Suspect]
     Indication: HEPATITIS C
     Route: 048
     Dates: start: 20100506, end: 20110407
  6. ENALAPRIL [Concomitant]
     Indication: ESSENTIAL HYPERTENSION
     Route: 048
  7. ESCITALOPRAM [Concomitant]
     Indication: DEPRESSION
     Route: 048

REACTIONS (1)
  - ALCOHOL WITHDRAWAL SYNDROME [None]
